FAERS Safety Report 9985261 (Version 3)
Quarter: 2014Q2

REPORT INFORMATION
  Report Type: Report from Study
  Country: US (occurrence: US)
  Receive Date: 20140307
  Receipt Date: 20140616
  Transmission Date: 20141212
  Serious: Yes (Hospitalization, Other)
  Sender: FDA-Public Use
  Company Number: US-ABBVIE-13P-163-1184699-00

PATIENT
  Age: 18 Year
  Sex: Male

DRUGS (5)
  1. HUMIRA [Suspect]
     Indication: CROHN^S DISEASE
     Dosage: LOADING DOSE
     Route: 058
     Dates: start: 201309, end: 201309
  2. HUMIRA [Suspect]
     Route: 058
     Dates: start: 201309, end: 201309
  3. HUMIRA [Suspect]
     Route: 058
     Dates: start: 201310, end: 201311
  4. HUMIRA [Suspect]
     Route: 058
     Dates: start: 201405, end: 201405
  5. OTC ALLERGY MEDICATION [Concomitant]
     Indication: SEASONAL ALLERGY

REACTIONS (8)
  - Large intestinal stenosis [Recovered/Resolved]
  - Intestinal obstruction [Recovered/Resolved]
  - Post procedural complication [Recovered/Resolved]
  - Thrombosis mesenteric vessel [Recovering/Resolving]
  - Malaise [Not Recovered/Not Resolved]
  - Abdominal adhesions [Not Recovered/Not Resolved]
  - Crohn^s disease [Not Recovered/Not Resolved]
  - Gastrointestinal inflammation [Not Recovered/Not Resolved]
